FAERS Safety Report 8144922-7 (Version None)
Quarter: 2012Q1

REPORT INFORMATION
  Report Type: 
  Country: None (occurrence: None)
  Receive Date: 20120217
  Receipt Date: 20120210
  Transmission Date: 20120608
  Serious: Yes (Hospitalization)
  Sender: FDA-Public Use
  Company Number: FR-MERCK-1202USA02103

PATIENT
  Age: 64 Year
  Sex: Male

DRUGS (2)
  1. TARGOCID [Suspect]
     Indication: RHODOCOCCUS INFECTION
     Route: 042
     Dates: start: 20111205, end: 20120105
  2. PRIMAXIN [Suspect]
     Indication: RHODOCOCCUS INFECTION
     Route: 042
     Dates: start: 20111201, end: 20120105

REACTIONS (1)
  - BRONCHOSPASM [None]
